FAERS Safety Report 8491446-3 (Version None)
Quarter: 2012Q3

REPORT INFORMATION
  Report Type: 
  Country: None (occurrence: None)
  Receive Date: 20120706
  Receipt Date: 20120703
  Transmission Date: 20120928
  Serious: Yes (Hospitalization)
  Sender: FDA-Public Use
  Company Number: FR-BAYER-2012-066463

PATIENT
  Age: 76 Year
  Sex: Female

DRUGS (6)
  1. FRAGMIN [Suspect]
     Indication: THROMBOSIS PROPHYLAXIS
     Dosage: 5000 IU, QD
     Route: 042
     Dates: start: 20120615
  2. PREDNISONE TAB [Suspect]
     Dosage: 5 MG, QD
     Route: 048
     Dates: start: 20120615
  3. CIPROFLOXACIN HYDROCHLORIDE [Suspect]
     Indication: BRONCHITIS
     Dosage: 750 MG, BID
     Route: 048
     Dates: start: 20120615, end: 20120618
  4. TAZOBACTAM [Suspect]
     Indication: BRONCHITIS
     Dosage: 4 G, TID
     Route: 042
     Dates: start: 20120615
  5. OROCAL D(3) [Suspect]
     Indication: VITAMIN D DEFICIENCY
     Dosage: 2 DF, QD
     Route: 048
     Dates: start: 20120615
  6. FERROUS SULFATE TAB [Suspect]
     Indication: IRON DEFICIENCY ANAEMIA
     Dosage: 1 DF, QD
     Route: 048
     Dates: start: 20120615

REACTIONS (1)
  - LIVER INJURY [None]
